FAERS Safety Report 13738899 (Version 1)
Quarter: 2017Q3

REPORT INFORMATION
  Report Type: Report from Study
  Country: US (occurrence: US)
  Receive Date: 20170710
  Receipt Date: 20170710
  Transmission Date: 20171127
  Serious: No
  Sender: FDA-Public Use
  Company Number: US-SAOL THERAPEUTICS-2017SAO00673

PATIENT
  Age: 42 Year
  Sex: Female

DRUGS (3)
  1. MORPHINE [Suspect]
     Active Substance: MORPHINE
     Dosage: 0.6 MG, \DAY
     Route: 037
     Dates: start: 20110628
  2. BACLOFEN. [Suspect]
     Active Substance: BACLOFEN
     Dosage: 50 ?G, \DAY
     Route: 037
     Dates: start: 20110614, end: 20110628
  3. MORPHINE [Suspect]
     Active Substance: MORPHINE
     Dosage: 0.625 MG, \DAY
     Route: 037
     Dates: start: 20110614, end: 20110628

REACTIONS (1)
  - Implant site pain [Recovered/Resolved]

NARRATIVE: CASE EVENT DATE: 20110628
